FAERS Safety Report 9458408 (Version 5)
Quarter: 2014Q1

REPORT INFORMATION
  Report Type: Spontaneous
  Country: FR (occurrence: FR)
  Receive Date: 20130814
  Receipt Date: 20140312
  Transmission Date: 20141002
  Serious: Yes (Other)
  Sender: FDA-Public Use
  Company Number: FR-009507513-1308FRA004177

PATIENT
  Age: 80 Year
  Sex: Female

DRUGS (4)
  1. NOROXINE [Suspect]
     Indication: URINARY TRACT INFECTION
     Dosage: UNK
     Route: 048
     Dates: start: 20130703, end: 201307
  2. THALIDOMIDE [Suspect]
     Indication: PLASMA CELL MYELOMA
     Dosage: 100 MG, QD
     Route: 048
     Dates: start: 20120823, end: 20130817
  3. MELPHALAN [Concomitant]
     Dosage: UNK
     Dates: start: 201208
  4. PREDNISONE [Concomitant]
     Dosage: UNK
     Dates: start: 201208

REACTIONS (3)
  - Pain in extremity [Recovered/Resolved with Sequelae]
  - Oedema peripheral [Recovered/Resolved]
  - Peripheral sensory neuropathy [Recovered/Resolved with Sequelae]
